FAERS Safety Report 4479371-6 (Version None)
Quarter: 2004Q4

REPORT INFORMATION
  Report Type: 
  Country: None (occurrence: None)
  Receive Date: 20041015
  Receipt Date: 20041008
  Transmission Date: 20050328
  Serious: Yes (Death)
  Sender: FDA-Public Use
  Company Number: 2004227769US

PATIENT
  Sex: 0

DRUGS (1)
  1. FRAGMIN (DALTEPARAIN SODIUM) SOLUTION, STERILE [Suspect]
     Indication: THROMBOSIS PROPHYLAXIS

REACTIONS (3)
  - DRUG INEFFECTIVE [None]
  - POST PROCEDURAL COMPLICATION [None]
  - PULMONARY EMBOLISM [None]
